FAERS Safety Report 7524864-8 (Version None)
Quarter: 2011Q2

REPORT INFORMATION
  Report Type: 
  Country: None (occurrence: None)
  Receive Date: 20110606
  Receipt Date: 20110524
  Transmission Date: 20111010
  Serious: Yes (Death)
  Sender: FDA-Public Use
  Company Number: CA-ELI_LILLY_AND_COMPANY-CA201105007332

PATIENT
  Age: 68 Year
  Sex: Male

DRUGS (17)
  1. OCUFLOX [Concomitant]
     Dosage: UNK, UNKNOWN
     Route: 065
  2. NEXIUM [Concomitant]
     Dosage: UNK, UNKNOWN
     Route: 065
  3. CALCIUM CARBONATE [Concomitant]
     Dosage: UNK, UNKNOWN
     Route: 065
  4. CLONAZEPAM [Concomitant]
     Dosage: UNK, UNKNOWN
     Route: 065
  5. UNIPHYL [Concomitant]
     Dosage: UNK, UNKNOWN
     Route: 065
  6. CENTRUM [Concomitant]
     Dosage: UNK, UNKNOWN
     Route: 065
  7. SPIRIVA [Concomitant]
     Dosage: UNK, UNKNOWN
     Route: 065
  8. PREDNISONE [Concomitant]
     Dosage: UNK, UNKNOWN
     Route: 065
  9. ADVAIR DISKUS 100/50 [Concomitant]
     Dosage: UNK, UNKNOWN
     Route: 065
  10. FUCIDINE CAP [Concomitant]
     Dosage: UNK, UNKNOWN
     Route: 065
  11. SYNTHROID [Concomitant]
     Dosage: UNK, UNKNOWN
     Route: 065
  12. AMLODIPINE [Concomitant]
     Dosage: UNK, UNKNOWN
     Route: 065
  13. ZYLOPRIM [Concomitant]
     Dosage: UNK, UNKNOWN
     Route: 065
  14. D-TABS [Concomitant]
     Dosage: UNK, UNKNOWN
     Route: 065
  15. FORTEO [Suspect]
     Indication: OSTEOPOROSIS
     Dosage: 20 UG, QD
     Route: 058
     Dates: start: 20100122
  16. SYMBICORT [Concomitant]
     Dosage: UNK, UNKNOWN
     Route: 065
  17. VENTOLIN [Concomitant]
     Dosage: UNK, UNKNOWN
     Route: 065

REACTIONS (1)
  - DEATH [None]
